FAERS Safety Report 9455530 (Version 6)
Quarter: 2013Q3

REPORT INFORMATION
  Report Type: Spontaneous
  Country: JP (occurrence: JP)
  Receive Date: 20130813
  Receipt Date: 20130930
  Transmission Date: 20140515
  Serious: Yes (Other)
  Sender: FDA-Public Use
  Company Number: JP-PFIZER INC-2013233327

PATIENT
  Age: 84 Year
  Sex: Male
  Weight: 46.5 kg

DRUGS (20)
  1. LYRICA [Suspect]
     Indication: NEURALGIA
     Dosage: 75 MG, 1X/DAY
     Route: 048
     Dates: start: 20130805, end: 20130805
  2. LYRICA [Suspect]
     Dosage: 75 MG, 2X/DAY
     Route: 048
     Dates: start: 20130806, end: 20130806
  3. LYRICA [Suspect]
     Dosage: 75 MG, 1X/DAY
     Route: 048
     Dates: start: 20130807
  4. METILON [Concomitant]
     Indication: NEURALGIA
     Dosage: UNK
  5. ULCERLMIN [Concomitant]
  6. KOLANTYL [Concomitant]
  7. ASPARA K [Concomitant]
     Dosage: 300 MG
  8. FAMOSTAGINE D [Concomitant]
     Dosage: 20 MG
  9. HARNAL [Concomitant]
     Dosage: 0.2 MG
  10. ROZEREM [Concomitant]
     Dosage: 8 MG
  11. DICETAMIN [Concomitant]
     Dosage: 25 MG
  12. RESLIN [Concomitant]
     Dosage: 25 MG
  13. BIOFERMIN [Concomitant]
  14. PROMAC D [Concomitant]
     Dosage: 75 MG
  15. KEISIKAJUTUBUTO [Concomitant]
  16. MUCOSOLVAN [Concomitant]
     Dosage: 15 MG
  17. ASVERIN [Concomitant]
  18. SELBEX [Concomitant]
     Dosage: 50 MG
  19. THEO-DUR [Concomitant]
     Dosage: 100 MG
  20. MAGNESIUM OXIDE [Concomitant]
     Dosage: 1 G

REACTIONS (8)
  - Delirium [Recovered/Resolved]
  - Dizziness [Recovered/Resolved]
  - Fall [Unknown]
  - Head injury [Unknown]
  - Face injury [Unknown]
  - Somnolence [Recovered/Resolved]
  - Hallucination, visual [Not Recovered/Not Resolved]
  - Disorientation [Recovered/Resolved]
